FAERS Safety Report 12852776 (Version 1)
Quarter: 2016Q4

REPORT INFORMATION
  Report Type: Spontaneous
  Country: HU (occurrence: HU)
  Receive Date: 20161017
  Receipt Date: 20161017
  Transmission Date: 20170207
  Serious: Yes (Death, Other)
  Sender: FDA-Public Use
  Company Number: HU-PFIZER INC-2016284556

PATIENT
  Age: 57 Year
  Sex: Male

DRUGS (5)
  1. FURON /00032601/ [Concomitant]
     Active Substance: FUROSEMIDE
     Dosage: 40 MG, 1 TABLET
  2. EGIRAMLON [Concomitant]
     Dosage: 2X1 TBL , DAILY
  3. BRINALDIX [Concomitant]
     Dosage: 20 MG, EVERY 2ND DAY
  4. PROCORALAN [Concomitant]
     Active Substance: IVABRADINE
     Dosage: 5 MG IN THE MORNING THEN 2.5 MG IN THE EVENING
  5. INLYTA [Suspect]
     Active Substance: AXITINIB
     Indication: CLEAR CELL RENAL CELL CARCINOMA
     Dosage: 5 MG, 2X/DAY (2X5 MG)
     Route: 048
     Dates: start: 20160502

REACTIONS (4)
  - Asthenia [Unknown]
  - Blood pressure increased [Recovered/Resolved]
  - Death [Fatal]
  - Anaemia [Unknown]
